FAERS Safety Report 8359376-5 (Version None)
Quarter: 2012Q2

REPORT INFORMATION
  Report Type: 
  Country: None (occurrence: None)
  Receive Date: 20120514
  Receipt Date: 20120514
  Transmission Date: 20120825
  Serious: Yes (Other)
  Sender: FDA-Public Use
  Company Number: None

PATIENT
  Age: 57 Year
  Sex: Female
  Weight: 127.0072 kg

DRUGS (2)
  1. NUVIGIL [Suspect]
     Indication: SOMNOLENCE
     Dosage: 75MG 1 A WEEK PO
     Route: 048
     Dates: start: 20110201, end: 20120511
  2. NUVIGIL [Suspect]
     Indication: SLEEP APNOEA SYNDROME
     Dosage: 75MG 1 A WEEK PO
     Route: 048
     Dates: start: 20110201, end: 20120511

REACTIONS (3)
  - PRURITUS [None]
  - FLUSHING [None]
  - ABDOMINAL DISCOMFORT [None]
